FAERS Safety Report 17839383 (Version 2)
Quarter: 2020Q2

REPORT INFORMATION
  Report Type: Spontaneous
  Country: GR (occurrence: GR)
  Receive Date: 20200529
  Receipt Date: 20200604
  Transmission Date: 20200714
  Serious: Yes (Death, Other)
  Sender: FDA-Public Use
  Company Number: GR-BAXTER-2020BAX010896

PATIENT
  Age: 78 Year
  Sex: Male

DRUGS (3)
  1. SODIUM CHLORIDE 0.9%/BAXTER [Suspect]
     Active Substance: SODIUM CHLORIDE
     Indication: PRODUCT USED FOR UNKNOWN INDICATION
     Route: 065
  2. BLOOD [Concomitant]
     Active Substance: WHOLE BLOOD
     Indication: PRODUCT USED FOR UNKNOWN INDICATION
     Dosage: BLOOD TRANSFUSION
     Route: 065
     Dates: end: 20200421
  3. BLOOD [Concomitant]
     Active Substance: WHOLE BLOOD
     Dosage: BLOOD TRANSFUSION
     Route: 065
     Dates: end: 20200421

REACTIONS (6)
  - Septic shock [Fatal]
  - Multiple organ dysfunction syndrome [Fatal]
  - Staphylococcal infection [Unknown]
  - Proteus infection [Unknown]
  - Pyrexia [Unknown]
  - Chills [Unknown]

NARRATIVE: CASE EVENT DATE: 20200421
